FAERS Safety Report 24287201 (Version 2)
Quarter: 2024Q4

REPORT INFORMATION
  Report Type: Spontaneous
  Country: JP (occurrence: JP)
  Receive Date: 20240905
  Receipt Date: 20241011
  Transmission Date: 20250115
  Serious: Yes (Other)
  Sender: MERCK
  Company Number: JP-MSD-M2024-34751

PATIENT
  Age: 69 Year
  Sex: Female

DRUGS (4)
  1. KEYTRUDA [Suspect]
     Active Substance: PEMBROLIZUMAB
     Dosage: 200 MILLIGRAM, Q3W
     Route: 041
  2. KEYTRUDA [Suspect]
     Active Substance: PEMBROLIZUMAB
     Dosage: 200 MILLIGRAM, Q3W
     Route: 041
     Dates: start: 2024
  3. ALIMTA [Concomitant]
     Active Substance: PEMETREXED DISODIUM
     Dosage: UNK
     Route: 065
  4. ALIMTA [Concomitant]
     Active Substance: PEMETREXED DISODIUM
     Dosage: UNK
     Route: 065
     Dates: start: 2024

REACTIONS (1)
  - Cholecystitis [Recovered/Resolved]

NARRATIVE: CASE EVENT DATE: 20240701
